FAERS Safety Report 8424104-1 (Version None)
Quarter: 2012Q2

REPORT INFORMATION
  Report Type: 
  Country: None (occurrence: None)
  Receive Date: 20120608
  Receipt Date: 20110318
  Transmission Date: 20120825
  Serious: No
  Sender: FDA-Public Use
  Company Number: US-ASTRAZENECA-2011SE15736

PATIENT
  Age: 61 Year
  Sex: Female

DRUGS (1)
  1. PULMICORT FLEXHALER [Suspect]
     Route: 055

REACTIONS (7)
  - MALAISE [None]
  - EMOTIONAL DISTRESS [None]
  - WHEEZING [None]
  - DYSPNOEA [None]
  - DRUG DOSE OMISSION [None]
  - ASTHMA [None]
  - INSOMNIA [None]
